FAERS Safety Report 14169422 (Version 1)
Quarter: 2017Q4

REPORT INFORMATION
  Report Type: Spontaneous
  Country: US (occurrence: US)
  Receive Date: 20171107
  Receipt Date: 20171107
  Transmission Date: 20180321
  Serious: No
  Sender: FDA-Public Use
  Company Number: US-009507513-1710USA010363

PATIENT
  Age: 34 Year
  Sex: Female
  Weight: 54.42 kg

DRUGS (2)
  1. NUVARING [Suspect]
     Active Substance: ETHINYL ESTRADIOL\ETONOGESTREL
     Indication: CONTRACEPTION
     Dosage: 3 WEEKS IN, 1 WEEK OUT
     Route: 067
     Dates: start: 201601
  2. TRINTELLIX [Concomitant]
     Active Substance: VORTIOXETINE HYDROBROMIDE

REACTIONS (5)
  - Influenza like illness [Unknown]
  - Appetite disorder [Unknown]
  - Female sterilisation [Unknown]
  - Vaginal haemorrhage [Unknown]
  - Insomnia [Unknown]

NARRATIVE: CASE EVENT DATE: 20171012
